FAERS Safety Report 9756140 (Version 1)
Quarter: 2013Q4

REPORT INFORMATION
  Report Type: Spontaneous
  Country: US (occurrence: US)
  Receive Date: 20131213
  Receipt Date: 20131213
  Transmission Date: 20140711
  Serious: Yes (Hospitalization)
  Sender: FDA-Public Use
  Company Number: US-ABBVIE-13P-163-1177082-00

PATIENT
  Age: 3 Year
  Sex: Female

DRUGS (1)
  1. LEVOTHYROXINE [Suspect]
     Indication: PRODUCT USED FOR UNKNOWN INDICATION
     Dosage: 50 OR MORE 175 MCG PILLS

REACTIONS (2)
  - Accidental exposure to product [Recovered/Resolved]
  - Hyperthyroidism [Recovered/Resolved]
